FAERS Safety Report 7495440-0 (Version None)
Quarter: 2011Q2

REPORT INFORMATION
  Report Type: 
  Country: None (occurrence: None)
  Receive Date: 20110523
  Receipt Date: 20110411
  Transmission Date: 20111010
  Serious: No
  Sender: FDA-Public Use
  Company Number: US-TYCO HEALTHCARE/MALLINCKRODT-T201100714

PATIENT
  Sex: Male
  Weight: 83.447 kg

DRUGS (6)
  1. ZOLOFT [Concomitant]
     Indication: STRESS
     Dosage: 75 MG, QD
  2. FENTANYL [Concomitant]
     Indication: CANCER PAIN
     Dosage: 100 UG/HR Q72 HOURS
  3. LUPRON [Concomitant]
     Indication: NEOPLASM MALIGNANT
     Dosage: 1 INJECTION EVERY 3 MONTHS
  4. ADVIL LIQUI-GELS [Concomitant]
     Dosage: PRN
  5. FENTANYL-100 [Suspect]
     Indication: CANCER PAIN
     Dosage: 50 UG/HR, Q72 HOURS
     Route: 062
     Dates: start: 20110401
  6. PREDNISONE [Concomitant]
     Indication: NEOPLASM MALIGNANT
     Dosage: 5 MG, BID

REACTIONS (1)
  - DRUG INEFFECTIVE [None]
